FAERS Safety Report 7628787-5 (Version None)
Quarter: 2011Q3

REPORT INFORMATION
  Report Type: 
  Country: None (occurrence: None)
  Receive Date: 20110722
  Receipt Date: 20110717
  Transmission Date: 20111222
  Serious: Yes (Other)
  Sender: FDA-Public Use
  Company Number: AR-PFIZER INC-2011163180

PATIENT
  Age: 55 Year
  Sex: Male

DRUGS (2)
  1. SUNITINIB MALATE [Suspect]
     Indication: NEUROENDOCRINE CARCINOMA
     Dosage: 37.5 MG, 1X/DAY
     Dates: start: 20110301, end: 20110501
  2. CAPECITABINE [Concomitant]
     Dosage: UNK
     Route: 048
     Dates: start: 20060801

REACTIONS (6)
  - ASTHENIA [None]
  - MUCOSAL INFLAMMATION [None]
  - DISEASE PROGRESSION [None]
  - SKIN LESION [None]
  - TOXICITY TO VARIOUS AGENTS [None]
  - NEUROENDOCRINE CARCINOMA [None]
